FAERS Safety Report 5751688-4 (Version None)
Quarter: 2008Q2

REPORT INFORMATION
  Report Type: 
  Country: None (occurrence: None)
  Receive Date: 20080528
  Receipt Date: 20080522
  Transmission Date: 20081010
  Serious: Yes (Death, Hospitalization)
  Sender: FDA-Public Use
  Company Number: PHHO2007HU03893

PATIENT
  Age: 63 Year
  Sex: Female
  Weight: 68 kg

DRUGS (9)
  1. TASIGNA [Suspect]
     Indication: CHRONIC MYELOID LEUKAEMIA
     Dosage: 400MG DAILY
     Route: 048
     Dates: start: 20061107, end: 20070222
  2. TASIGNA [Suspect]
     Dosage: 400 MG, QD
     Route: 048
     Dates: start: 20070312, end: 20071116
  3. AUGMENTIN '125' [Concomitant]
  4. FRAGMIN [Concomitant]
  5. EDNYT [Concomitant]
  6. METAMIZOL [Concomitant]
  7. THEOSPIREX [Concomitant]
  8. ACTRAPID INSULIN NOVO [Concomitant]
  9. GLEEVEC [Suspect]

REACTIONS (6)
  - ACUTE MYOCARDIAL INFARCTION [None]
  - ARTERIAL INJURY [None]
  - ATRIAL FIBRILLATION [None]
  - CEREBROVASCULAR ACCIDENT [None]
  - URTICARIA [None]
  - VASCULAR ENCEPHALOPATHY [None]
